FAERS Safety Report 7868144-X (Version None)
Quarter: 2011Q4

REPORT INFORMATION
  Report Type: 
  Country: None (occurrence: None)
  Receive Date: 20111028
  Receipt Date: 20111028
  Transmission Date: 20120403
  Serious: Yes (Hospitalization)
  Sender: FDA-Public Use
  Company Number: US-BAXTER-2011BH034040

PATIENT
  Age: 62 Year
  Sex: Female

DRUGS (4)
  1. ELOTUZUMAB [Suspect]
     Indication: MULTIPLE MYELOMA
     Route: 042
     Dates: start: 20110927, end: 20110927
  2. LENALIDOMIDE [Suspect]
     Indication: MULTIPLE MYELOMA
     Route: 048
     Dates: start: 20111003
  3. DEXAMETHASONE [Suspect]
     Indication: MULTIPLE MYELOMA
     Route: 042
     Dates: start: 20110927, end: 20110927
  4. DEXAMETHASONE [Suspect]
     Route: 048
     Dates: start: 20110927, end: 20110927

REACTIONS (1)
  - PNEUMONIA [None]
